FAERS Safety Report 7256855-9 (Version None)
Quarter: 2011Q1

REPORT INFORMATION
  Report Type: 
  Country: None (occurrence: None)
  Receive Date: 20110129
  Receipt Date: 20100621
  Transmission Date: 20110831
  Serious: No
  Sender: FDA-Public Use
  Company Number: US-ABBOTT-10P-163-0652467-00

PATIENT

DRUGS (4)
  1. CLARITIN [Concomitant]
     Indication: HYPERSENSITIVITY
  2. HUMIRA [Suspect]
     Indication: PUSTULAR PSORIASIS
     Dates: start: 20070101, end: 20100401
  3. ALBUTEROL INHALER [Concomitant]
     Indication: ASTHMA
     Route: 055
  4. HUMIRA [Suspect]
     Indication: RHEUMATOID ARTHRITIS

REACTIONS (2)
  - ARTHRITIS [None]
  - PSORIASIS [None]
